FAERS Safety Report 24064530 (Version 3)
Quarter: 2024Q3

REPORT INFORMATION
  Report Type: Spontaneous
  Country: BE (occurrence: BE)
  Receive Date: 20240709
  Receipt Date: 20240801
  Transmission Date: 20241017
  Serious: Yes (Hospitalization, Other)
  Sender: SANOFI AVENTIS
  Company Number: None

PATIENT
  Age: 47 Year
  Sex: Female
  Weight: 83 kg

DRUGS (13)
  1. ENOXAPARIN SODIUM [Suspect]
     Active Substance: ENOXAPARIN SODIUM
     Indication: Prophylaxis
     Dosage: 80 MG
  2. ENOXAPARIN SODIUM [Suspect]
     Active Substance: ENOXAPARIN SODIUM
     Indication: Pulmonary embolism
     Dosage: 80 MG, BID
  3. ENOXAPARIN SODIUM [Suspect]
     Active Substance: ENOXAPARIN SODIUM
     Dosage: 40 MG, QD
  4. RIVAROXABAN [Suspect]
     Active Substance: RIVAROXABAN
     Indication: Pulmonary embolism
     Dosage: 15 MG, BID
     Route: 048
  5. RIVAROXABAN [Suspect]
     Active Substance: RIVAROXABAN
     Indication: Deep vein thrombosis
     Dosage: 20 MG, QD
  6. ETHINYL ESTRADIOL\LEVONORGESTREL [Suspect]
     Active Substance: ETHINYL ESTRADIOL\LEVONORGESTREL
     Indication: Menometrorrhagia
     Dosage: ON A CONTINUOUS BASIS (WITHOUT PILL-FREE DAYS)
     Route: 048
  7. ETHINYL ESTRADIOL\LEVONORGESTREL [Suspect]
     Active Substance: ETHINYL ESTRADIOL\LEVONORGESTREL
     Indication: Contraception
     Dosage: PILLS
     Route: 048
  8. ALTEPLASE [Suspect]
     Active Substance: ALTEPLASE
     Indication: Pulmonary embolism
     Dosage: 10  MG BOLUS
  9. ALTEPLASE [Suspect]
     Active Substance: ALTEPLASE
     Dosage: INFUSION OVER 2 HOURS
  10. DESLORATADINE [Concomitant]
     Active Substance: DESLORATADINE
     Indication: Seasonal allergy
     Dosage: UNK
  11. BECLOMETHASONE\FORMOTEROL [Concomitant]
     Active Substance: BECLOMETHASONE\FORMOTEROL
     Indication: Asthma
     Dosage: UNK
     Route: 055
  12. OXYGEN [Concomitant]
     Active Substance: OXYGEN
     Indication: Respiratory distress
     Dosage: 12 L
  13. SODIUM CHLORIDE [Concomitant]
     Active Substance: SODIUM CHLORIDE
     Indication: Hypotension
     Dosage: 500 ML

REACTIONS (4)
  - Vaginal haemorrhage [Unknown]
  - Presyncope [Unknown]
  - Pallor [Unknown]
  - Blood loss anaemia [Unknown]
